FAERS Safety Report 8534253-5 (Version None)
Quarter: 2012Q3

REPORT INFORMATION
  Report Type: 
  Country: None (occurrence: None)
  Receive Date: 20120724
  Receipt Date: 20120718
  Transmission Date: 20120928
  Serious: Yes (Other)
  Sender: FDA-Public Use
  Company Number: FR-BAYER-2012-072508

PATIENT
  Age: 70 Year
  Sex: Female

DRUGS (2)
  1. CLARITHROMYCIN [Suspect]
     Dosage: 1 G, UNK
     Route: 048
     Dates: start: 20111201, end: 20120501
  2. MOXIFLOXACIN HCL [Suspect]
     Dosage: 400 MG, QD
     Route: 048
     Dates: start: 20111201, end: 20120501

REACTIONS (1)
  - CORNEAL DEPOSITS [None]
